FAERS Safety Report 13059321 (Version 1)
Quarter: 2016Q4

REPORT INFORMATION
  Report Type: Spontaneous
  Country: US (occurrence: US)
  Receive Date: 20161223
  Receipt Date: 20161223
  Transmission Date: 20170207
  Serious: No
  Sender: FDA-Public Use
  Company Number: US-BAUSCH-BL-2016-017666

PATIENT
  Age: 65 Year
  Sex: Female

DRUGS (2)
  1. XENAZINE [Suspect]
     Active Substance: TETRABENAZINE
     Indication: DYSKINESIA
     Dosage: TAKE 1 TABLET AT 7AM AND TAKE HALF TABLET AT 3AM
     Route: 048
     Dates: start: 20151111
  2. XENAZINE [Suspect]
     Active Substance: TETRABENAZINE
     Dosage: TAKE HALF TABLET AT 7AM AND 3AM
     Route: 048
     Dates: start: 2016

REACTIONS (2)
  - Depression [Recovering/Resolving]
  - Off label use [Not Recovered/Not Resolved]

NARRATIVE: CASE EVENT DATE: 20151111
